FAERS Safety Report 24969757 (Version 1)
Quarter: 2025Q1

REPORT INFORMATION
  Report Type: Spontaneous
  Country: GB (occurrence: GB)
  Receive Date: 20250214
  Receipt Date: 20250214
  Transmission Date: 20250409
  Serious: Yes (Other)
  Sender: AUROBINDO
  Company Number: GB-MHRA-34574290

PATIENT
  Sex: Male

DRUGS (1)
  1. TOPIRAMATE [Suspect]
     Active Substance: TOPIRAMATE
     Indication: Product used for unknown indication
     Route: 065

REACTIONS (5)
  - Hallucination, auditory [Unknown]
  - Hallucination [Unknown]
  - Abnormal dreams [Unknown]
  - Insomnia [Unknown]
  - Nightmare [Unknown]
